FAERS Safety Report 4349899-8 (Version None)
Quarter: 2004Q2

REPORT INFORMATION
  Report Type: 
  Country: None (occurrence: None)
  Receive Date: 20040426
  Receipt Date: 20040414
  Transmission Date: 20050107
  Serious: Yes (Hospitalization)
  Sender: FDA-Public Use
  Company Number: 2004209083US

PATIENT

DRUGS (1)
  1. CAMPTOSAR [Suspect]

REACTIONS (1)
  - ARRHYTHMIA [None]
